FAERS Safety Report 6875919-2 (Version None)
Quarter: 2010Q3

REPORT INFORMATION
  Report Type: 
  Country: None (occurrence: None)
  Receive Date: 20100727
  Receipt Date: 20100714
  Transmission Date: 20110219
  Serious: Yes (Disabling)
  Sender: FDA-Public Use
  Company Number: PHFR2010GB01308

PATIENT
  Sex: Female
  Weight: 152 kg

DRUGS (3)
  1. FEMARA [Suspect]
     Dosage: 2.5 MG
     Route: 048
     Dates: start: 20090623
  2. CALCIUM W/COLECALCIFEROL [Concomitant]
     Indication: BONE DISORDER
     Dosage: 1 DF, BID
     Route: 048
     Dates: start: 20090605
  3. IBUPROFEN TABLETS [Concomitant]
     Dosage: 400 MG, TID, PRN
     Route: 048
     Dates: start: 20100210

REACTIONS (1)
  - JOINT STIFFNESS [None]
